FAERS Safety Report 7727493-6 (Version None)
Quarter: 2011Q3

REPORT INFORMATION
  Report Type: 
  Country: None (occurrence: None)
  Receive Date: 20110902
  Receipt Date: 20110830
  Transmission Date: 20111222
  Serious: No
  Sender: FDA-Public Use
  Company Number: US-PFIZER INC-2011154178

PATIENT
  Sex: Male

DRUGS (1)
  1. FLAGYL [Suspect]
     Dosage: UNK

REACTIONS (2)
  - DIZZINESS [None]
  - VERTIGO [None]
